FAERS Safety Report 22608764 (Version 1)
Quarter: 2023Q2

REPORT INFORMATION
  Report Type: Other
  Country: DE (occurrence: None)
  Receive Date: 20230616
  Receipt Date: 20230616
  Transmission Date: 20230722
  Serious: No
  Sender: FDA-Public Use
  Company Number: DE-ROCHE-3185594

PATIENT
  Age: 21 Year
  Sex: Female

DRUGS (7)
  1. OCRELIZUMAB [Suspect]
     Active Substance: OCRELIZUMAB
     Indication: Relapsing multiple sclerosis
     Dosage: (V1 BASELINE)
     Route: 042
     Dates: start: 20220831
  2. OCRELIZUMAB [Suspect]
     Active Substance: OCRELIZUMAB
     Dosage: (V1 BASELINE)
     Route: 042
     Dates: start: 20230301
  3. CHOLECALCIFEROL [Concomitant]
     Active Substance: CHOLECALCIFEROL
     Indication: Prophylaxis
     Route: 048
     Dates: start: 201802
  4. PREDNISOLONE [Concomitant]
     Active Substance: PREDNISOLONE
     Indication: Premedication
     Dosage: V1 BASELINE
     Route: 042
     Dates: start: 20220831, end: 20220831
  5. PREDNISOLONE [Concomitant]
     Active Substance: PREDNISOLONE
     Dosage: V1 BASELINE - 2ND INFUSION
     Route: 042
     Dates: start: 20220919, end: 20220919
  6. EBASTINE [Concomitant]
     Active Substance: EBASTINE
     Indication: Premedication
     Dosage: V1 BASELINE, 2 TIMES A DAY FOR 3 DAYS, START 1 DAY BEFORE INFUSION
     Route: 048
     Dates: start: 20220830, end: 20220901
  7. EBASTINE [Concomitant]
     Active Substance: EBASTINE
     Dosage: V1 BASELINE, 2 TIMES A DAY FOR 3 DAYS, START 1 DAY BEFORE INFUSION
     Route: 048
     Dates: start: 20220918, end: 20220920

REACTIONS (4)
  - COVID-19 [Recovered/Resolved]
  - Lymphocyte count decreased [Recovered/Resolved]
  - Infusion related reaction [Recovered/Resolved]
  - Upper respiratory tract infection [Recovered/Resolved]

NARRATIVE: CASE EVENT DATE: 20220831
